FAERS Safety Report 25734757 (Version 1)
Quarter: 2025Q3

REPORT INFORMATION
  Report Type: Spontaneous
  Country: JP (occurrence: JP)
  Receive Date: 20250828
  Receipt Date: 20250828
  Transmission Date: 20251021
  Serious: Yes (Other)
  Sender: UCB
  Company Number: JP-MMM-Otsuka-156BHO3S

PATIENT
  Sex: Male

DRUGS (2)
  1. NEUPRO [Suspect]
     Active Substance: ROTIGOTINE
     Indication: Parkinson^s disease
  2. NEUPRO [Suspect]
     Active Substance: ROTIGOTINE

REACTIONS (5)
  - Neck deformity [Unknown]
  - Balance disorder [Unknown]
  - Musculoskeletal stiffness [Unknown]
  - Neck pain [Recovered/Resolved]
  - Hypotension [Unknown]
